FAERS Safety Report 5074714-7 (Version None)
Quarter: 2006Q3

REPORT INFORMATION
  Report Type: 
  Country: None (occurrence: None)
  Receive Date: 20060807
  Receipt Date: 20060726
  Transmission Date: 20061208
  Serious: Yes (Hospitalization)
  Sender: FDA-Public Use
  Company Number: 2006092571

PATIENT
  Age: 50 Year
  Sex: Female

DRUGS (2)
  1. NORVASC [Suspect]
     Indication: DRUG USE FOR UNKNOWN INDICATION
     Dosage: 5 MG (DAILY), ORAL
     Route: 048
  2. DRUG, UNSPECIFIED (DRUG, UNSPECIFIED) [Concomitant]

REACTIONS (3)
  - EXOSTOSIS [None]
  - NEURALGIA [None]
  - ROAD TRAFFIC ACCIDENT [None]
